FAERS Safety Report 8828117 (Version 5)
Quarter: 2013Q2

REPORT INFORMATION
  Report Type: Report from Study
  Country: BR (occurrence: BR)
  Receive Date: 20121008
  Receipt Date: 20130508
  Transmission Date: 20140414
  Serious: Yes (Hospitalization, Other)
  Sender: FDA-Public Use
  Company Number: PHHY2012BR069168

PATIENT
  Sex: Female

DRUGS (5)
  1. GILENYA [Suspect]
     Indication: MULTIPLE SCLEROSIS
     Dosage: 1 DF, UNK
     Route: 048
     Dates: start: 201203
  2. BACLOFEN [Concomitant]
     Dosage: UNK UKN, UNK
     Dates: start: 2008
  3. CHLOORTALIDON [Concomitant]
     Indication: OEDEMA PERIPHERAL
     Dosage: 1 DF, QD
  4. CAPOTEN [Concomitant]
     Indication: HYPOTONIA
     Dosage: 4 DF, QD
     Route: 048
  5. SERTRALINE [Concomitant]
     Indication: DEPRESSION
     Dosage: 5 DF, QD
     Route: 048

REACTIONS (2)
  - Urinary tract infection [Recovering/Resolving]
  - Urinary incontinence [Recovering/Resolving]
